FAERS Safety Report 6078493-6 (Version None)
Quarter: 2009Q1

REPORT INFORMATION
  Report Type: 
  Country: None (occurrence: None)
  Receive Date: 20090211
  Receipt Date: 20090211
  Transmission Date: 20090719
  Serious: Yes (Other)
  Sender: FDA-Public Use
  Company Number: None

PATIENT
  Sex: Male

DRUGS (1)
  1. ROCURONIUM BROMIDE [Suspect]
     Indication: INJURY
     Dosage: 12.5 ML -125 MG- ONCE IV
     Route: 042
     Dates: start: 20090209, end: 20090209

REACTIONS (1)
  - DRUG INEFFECTIVE [None]
